FAERS Safety Report 4802617-9 (Version None)
Quarter: 2005Q4

REPORT INFORMATION
  Report Type: 
  Country: None (occurrence: None)
  Receive Date: 20051014
  Receipt Date: 20050405
  Transmission Date: 20060501
  Serious: Yes (Other)
  Sender: FDA-Public Use
  Company Number: 2005046033

PATIENT
  Sex: Female
  Weight: 95.2554 kg

DRUGS (8)
  1. NEURONTIN [Suspect]
     Indication: CONVULSION
     Dosage: 200 MG (100 MG, 2 IN 1 D) ORAL
     Route: 048
  2. GABAPENTIN [Suspect]
     Indication: PERIPHERAL SENSORY NEUROPATHY
     Dosage: 100 MG, 1 IN 1 D
  3. FAMOTIDINE [Concomitant]
  4. HYDROCHLOROTHIAZIDE [Concomitant]
  5. LEVOTHYROXINE SODIUM [Concomitant]
  6. PRAVASTATIN SODIUM [Concomitant]
  7. ASPIRIN [Concomitant]
  8. CYANOCOBALAMIN [Concomitant]

REACTIONS (7)
  - ASTHENIA [None]
  - CONVULSION [None]
  - DIZZINESS [None]
  - HEADACHE [None]
  - MALAISE [None]
  - SOMNOLENCE [None]
  - TREMOR [None]
